FAERS Safety Report 7420888-X (Version None)
Quarter: 2011Q2

REPORT INFORMATION
  Report Type: 
  Country: None (occurrence: None)
  Receive Date: 20110418
  Receipt Date: 20110405
  Transmission Date: 20111010
  Serious: Yes (Death)
  Sender: FDA-Public Use
  Company Number: A0918158A

PATIENT

DRUGS (1)
  1. FLOLAN [Suspect]
     Route: 042

REACTIONS (2)
  - DEATH [None]
  - DRUG ADMINISTRATION ERROR [None]
